FAERS Safety Report 6744131-X (Version None)
Quarter: 2010Q2

REPORT INFORMATION
  Report Type: 
  Country: None (occurrence: None)
  Receive Date: 20100527
  Receipt Date: 20100519
  Transmission Date: 20101027
  Serious: Yes (Other)
  Sender: FDA-Public Use
  Company Number: B0653621A

PATIENT
  Age: 54 Year
  Sex: Male
  Weight: 94 kg

DRUGS (2)
  1. CLENIL MODULITE [Suspect]
     Indication: ASTHMA
     Dosage: 4IUAX PER DAY
     Route: 055
     Dates: start: 20090918, end: 20090930
  2. SALBUTAMOL [Concomitant]
     Route: 055

REACTIONS (1)
  - MULTIPLE SCLEROSIS [None]
